FAERS Safety Report 21232368 (Version 1)
Quarter: 2022Q3

REPORT INFORMATION
  Report Type: Spontaneous
  Country: US (occurrence: None)
  Receive Date: 20220818
  Receipt Date: 20220818
  Transmission Date: 20221027
  Serious: No
  Sender: FDA-Public Use
  Company Number: None

PATIENT
  Age: 30 Year
  Sex: Female
  Weight: 76.66 kg

DRUGS (1)
  1. LEVOXYL [Suspect]
     Active Substance: LEVOTHYROXINE SODIUM
     Indication: Thyroid disorder
     Dosage: 112MCG QD PO?
     Route: 048
     Dates: start: 20220803, end: 20220811

REACTIONS (7)
  - Headache [None]
  - Increased appetite [None]
  - Nausea [None]
  - Insomnia [None]
  - Diarrhoea [None]
  - Product substitution issue [None]
  - Therapeutic response decreased [None]

NARRATIVE: CASE EVENT DATE: 20220808
